FAERS Safety Report 4462215-6 (Version None)
Quarter: 2004Q3

REPORT INFORMATION
  Report Type: 
  Country: None (occurrence: None)
  Receive Date: 20040929
  Receipt Date: 20040917
  Transmission Date: 20050211
  Serious: Yes (Congenital Anomaly)
  Sender: FDA-Public Use
  Company Number: NO-ROCHE-381166

PATIENT
  Sex: Female

DRUGS (1)
  1. ROACCUTANE [Suspect]
     Indication: ACNE
     Dates: start: 20020315, end: 20020615

REACTIONS (3)
  - CATARACT CONGENITAL [None]
  - DRUG EXPOSURE DURING PREGNANCY [None]
  - PREGNANCY [None]
